FAERS Safety Report 6810782-7 (Version None)
Quarter: 2010Q2

REPORT INFORMATION
  Report Type: 
  Country: None (occurrence: None)
  Receive Date: 20100630
  Receipt Date: 20080620
  Transmission Date: 20101027
  Serious: No
  Sender: FDA-Public Use
  Company Number: US-PFIZER INC-2008023533

PATIENT
  Age: 66 Year
  Sex: Female
  Weight: 65.909 kg

DRUGS (8)
  1. ESTRING [Suspect]
     Indication: VULVOVAGINAL DRYNESS
     Dates: start: 20071101
  2. CAMPTOSAR [Concomitant]
  3. ANTIBIOTICS [Concomitant]
  4. NORVASC [Concomitant]
     Indication: BLOOD PRESSURE ABNORMAL
  5. TEMARIL [Concomitant]
  6. PREMARIN [Concomitant]
  7. REQUIP [Concomitant]
  8. DRUG, UNSPECIFIED [Concomitant]

REACTIONS (2)
  - DIZZINESS [None]
  - DYSPNOEA [None]
